FAERS Safety Report 5004178-0 (Version None)
Quarter: 2006Q2

REPORT INFORMATION
  Report Type: 
  Country: None (occurrence: None)
  Receive Date: 20060517
  Receipt Date: 20060510
  Transmission Date: 20061013
  Serious: Yes (Hospitalization)
  Sender: FDA-Public Use
  Company Number: DE-JNJFOC-20060102725

PATIENT
  Sex: Male
  Weight: 35 kg

DRUGS (2)
  1. RISPERDAL [Suspect]
     Route: 048
  2. RISPERDAL [Suspect]
     Dosage: UP TO 10MG DAILY
     Route: 048

REACTIONS (5)
  - ATTENTION DEFICIT/HYPERACTIVITY DISORDER [None]
  - BLOOD PROLACTIN INCREASED [None]
  - DYSPHEMIA [None]
  - OVERDOSE [None]
  - PRECOCIOUS PUBERTY [None]
